FAERS Safety Report 4451255-9 (Version None)
Quarter: 2004Q3

REPORT INFORMATION
  Report Type: 
  Country: None (occurrence: None)
  Receive Date: 20040915
  Receipt Date: 20040915
  Transmission Date: 20050211
  Serious: Yes (Hospitalization)
  Sender: FDA-Public Use
  Company Number: None

PATIENT
  Age: 85 Year
  Sex: Male
  Weight: 72.1219 kg

DRUGS (2)
  1. TICLOPIDINE HCL [Suspect]
     Indication: CEREBROVASCULAR ACCIDENT PROPHYLAXIS
     Dosage: 250 MG PO BID
     Route: 048
     Dates: start: 20030201, end: 20040501
  2. SURGERY [Concomitant]

REACTIONS (2)
  - RASH [None]
  - THROMBOCYTOPENIC PURPURA [None]
